FAERS Safety Report 21922250 (Version 2)
Quarter: 2023Q1

REPORT INFORMATION
  Report Type: Report from Study
  Country: AR (occurrence: AR)
  Receive Date: 20230128
  Receipt Date: 20230214
  Transmission Date: 20230417
  Serious: Yes (Other)
  Sender: FDA-Public Use
  Company Number: AR-002147023-NVSC2022AR140364

PATIENT
  Age: 55 Year
  Sex: Male

DRUGS (2)
  1. TASIGNA [Suspect]
     Active Substance: NILOTINIB
     Indication: Chronic myeloid leukaemia
     Dosage: 800 MG, QD
     Route: 048
     Dates: start: 20110101, end: 20150101
  2. TASIGNA [Suspect]
     Active Substance: NILOTINIB
     Dosage: UNK
     Route: 065
     Dates: start: 20221125

REACTIONS (24)
  - Choking [Recovered/Resolved]
  - Chronic myeloid leukaemia recurrent [Unknown]
  - Recurrent cancer [Unknown]
  - Colitis [Recovered/Resolved]
  - Dizziness [Recovered/Resolved]
  - Peripheral swelling [Recovering/Resolving]
  - Nausea [Recovered/Resolved]
  - Mobility decreased [Unknown]
  - Gait disturbance [Unknown]
  - Arthropathy [Unknown]
  - General physical health deterioration [Unknown]
  - Red blood cell count decreased [Unknown]
  - Depression [Unknown]
  - Fatigue [Unknown]
  - Weight decreased [Unknown]
  - Abdominal pain [Recovered/Resolved]
  - Groin pain [Not Recovered/Not Resolved]
  - Inappropriate schedule of product administration [Unknown]
  - Pain [Unknown]
  - Colitis [Unknown]
  - Dizziness [Unknown]
  - Malaise [Unknown]
  - Platelet count increased [Unknown]
  - White blood cell count increased [Unknown]

NARRATIVE: CASE EVENT DATE: 20110101
